FAERS Safety Report 7545545-0 (Version None)
Quarter: 2011Q2

REPORT INFORMATION
  Report Type: 
  Country: None (occurrence: None)
  Receive Date: 20110614
  Receipt Date: 20110610
  Transmission Date: 20111010
  Serious: Yes (Death)
  Sender: FDA-Public Use
  Company Number: US-JNJFOC-20110509980

PATIENT
  Age: 72 Year
  Sex: Female
  Weight: 49.9 kg

DRUGS (4)
  1. IMODIUM MULTI-SYMPTOM RELIEF [Suspect]
     Route: 048
  2. IMODIUM MULTI-SYMPTOM RELIEF [Suspect]
     Indication: DIARRHOEA
     Dosage: 1-2 CAPLETS 3 TO 4 TIMES A DAY FOR 5 MONTHS
     Route: 048
     Dates: start: 20101201
  3. ALOSETRON [Concomitant]
     Indication: DIARRHOEA
     Route: 065
     Dates: start: 20110301
  4. CREON [Concomitant]
     Indication: DIARRHOEA
     Route: 065
     Dates: start: 20110301

REACTIONS (3)
  - INTENTIONAL DRUG MISUSE [None]
  - DEATH [None]
  - OVERDOSE [None]
